FAERS Safety Report 4661402-1 (Version None)
Quarter: 2005Q2

REPORT INFORMATION
  Report Type: 
  Country: None (occurrence: None)
  Receive Date: 20050513
  Receipt Date: 20050218
  Transmission Date: 20051028
  Serious: Yes (Hospitalization)
  Sender: FDA-Public Use
  Company Number: US-GLAXOSMITHKLINE-A0546329A

PATIENT
  Age: 32 Year
  Sex: Male
  Weight: 65.9 kg

DRUGS (3)
  1. TRIZIVIR [Suspect]
     Indication: HIV INFECTION
     Dosage: 1TAB TWICE PER DAY
     Route: 048
  2. VIREAD [Concomitant]
  3. IMODIUM [Concomitant]

REACTIONS (11)
  - ABDOMINAL PAIN [None]
  - COUGH [None]
  - DIARRHOEA [None]
  - GRANULOMA [None]
  - HYPERSENSITIVITY [None]
  - ILEUS [None]
  - NAUSEA [None]
  - PHARYNGITIS [None]
  - PYREXIA [None]
  - RHINORRHOEA [None]
  - VOMITING [None]
